FAERS Safety Report 23185687 (Version 1)
Quarter: 2023Q4

REPORT INFORMATION
  Report Type: Spontaneous
  Country: NL (occurrence: NL)
  Receive Date: 20231115
  Receipt Date: 20231115
  Transmission Date: 20240109
  Serious: Yes (Hospitalization)
  Sender: FDA-Public Use
  Company Number: None

PATIENT
  Age: 56 Year
  Sex: Female
  Weight: 61 kg

DRUGS (4)
  1. CLONAZEPAM [Suspect]
     Active Substance: CLONAZEPAM
     Indication: Agitation
     Dosage: DOSE INCREASE OF CLONAZEPAM TABLET 4 X 1 MG DAILY TO IN TOTAL 5 MG DAILY (2, 1,1,1 MG)
     Dates: start: 20230623
  2. CLONAZEPAM [Suspect]
     Active Substance: CLONAZEPAM
     Indication: Agitation
  3. ZUCLOPENTHIXOL [Suspect]
     Active Substance: ZUCLOPENTHIXOL
     Indication: Restlessness
     Dosage: DOSE INCREASE OF ZUCLOPENTIXOL TABLET FROM 25 MG TO 40 MG?DAILY DOSE: 25 MILLIGRAM
     Dates: start: 20230623, end: 20230705
  4. CLOZAPINE [Concomitant]
     Active Substance: CLOZAPINE

REACTIONS (4)
  - Urinary incontinence [Recovered/Resolved]
  - Drooling [Recovered/Resolved]
  - Parkinsonian gait [Recovered/Resolved]
  - Somnolence [Recovered/Resolved]
